FAERS Safety Report 5805518-2 (Version None)
Quarter: 2008Q3

REPORT INFORMATION
  Report Type: 
  Country: None (occurrence: None)
  Receive Date: 20080710
  Receipt Date: 20080701
  Transmission Date: 20090109
  Serious: Yes (Hospitalization)
  Sender: FDA-Public Use
  Company Number: DE-AMGEN-US256824

PATIENT
  Sex: Female
  Weight: 64 kg

DRUGS (8)
  1. ENBREL [Suspect]
     Indication: RHEUMATOID ARTHRITIS
     Route: 058
     Dates: start: 20070317
  2. ARAVA [Suspect]
     Indication: RHEUMATOID ARTHRITIS
     Route: 048
     Dates: start: 20061001, end: 20070701
  3. CYNT [Concomitant]
     Route: 065
  4. IBANDRONIC ACID [Concomitant]
     Route: 065
  5. PREDNISOLONE [Concomitant]
     Route: 048
     Dates: start: 20060701
  6. TRAMAL [Concomitant]
     Route: 065
  7. CALCILAC [Concomitant]
     Route: 065
  8. LEVOTHYROXINE SODIUM [Concomitant]
     Route: 065

REACTIONS (3)
  - DEHYDRATION [None]
  - KLEBSIELLA INFECTION [None]
  - UROSEPSIS [None]
